FAERS Safety Report 4492796-8 (Version None)
Quarter: 2004Q4

REPORT INFORMATION
  Report Type: 
  Country: None (occurrence: None)
  Receive Date: 20041029
  Receipt Date: 20041020
  Transmission Date: 20050328
  Serious: Yes (Death, Hospitalization, Other)
  Sender: FDA-Public Use
  Company Number: 2004-10-0494

PATIENT
  Age: 50 Year
  Sex: Male

DRUGS (9)
  1. TEMODAL [Suspect]
     Indication: GLIOBLASTOMA
     Dosage: 135 MG QD ORAL
     Route: 048
     Dates: start: 20040510, end: 20040616
  2. PRAVASTATIN [Concomitant]
  3. FLUDEX [Concomitant]
  4. TRANDOLAPRIL/VERAPAMIL [Concomitant]
  5. NEURONTIN [Concomitant]
  6. PREDNISOLONE [Concomitant]
  7. RADIATION THERAPY [Concomitant]
  8. MEDROL [Concomitant]
  9. KYTRIL [Concomitant]

REACTIONS (11)
  - BONE MARROW DEPRESSION [None]
  - CEREBRAL VENTRICLE DILATATION [None]
  - COMA [None]
  - CYTOLYTIC HEPATITIS [None]
  - DISTURBANCE IN ATTENTION [None]
  - EPILEPSY [None]
  - HYPERGLYCAEMIA [None]
  - HYPERTHERMIA [None]
  - LISTERIA SEPSIS [None]
  - MULTI-ORGAN FAILURE [None]
  - SEPSIS [None]
